FAERS Safety Report 17745679 (Version 1)
Quarter: 2020Q2

REPORT INFORMATION
  Report Type: Spontaneous
  Country: US (occurrence: US)
  Receive Date: 20200505
  Receipt Date: 20200505
  Transmission Date: 20200714
  Serious: No
  Sender: FDA-Public Use
  Company Number: None

PATIENT
  Age: 55 Year
  Sex: Female
  Weight: 63 kg

DRUGS (11)
  1. BELBUCA [Suspect]
     Active Substance: BUPRENORPHINE HYDROCHLORIDE
     Indication: PAIN MANAGEMENT
     Dosage: ?          QUANTITY:1 PATCH(ES);?
     Route: 060
  2. ZOFRAN [Concomitant]
     Active Substance: ONDANSETRON HYDROCHLORIDE
  3. KETAMINE [Concomitant]
     Active Substance: KETAMINE
  4. GAS-X [Concomitant]
     Active Substance: DIMETHICONE
  5. BENO [Concomitant]
  6. LORATADINE. [Concomitant]
     Active Substance: LORATADINE
  7. NORCO [Concomitant]
     Active Substance: ACETAMINOPHEN\HYDROCODONE BITARTRATE
  8. ALBUTEROL. [Concomitant]
     Active Substance: ALBUTEROL
  9. OMEPRAZOLE. [Concomitant]
     Active Substance: OMEPRAZOLE
  10. LEXACLEAR [Concomitant]
  11. TUMS [Concomitant]
     Active Substance: CALCIUM CARBONATE

REACTIONS (10)
  - Gait disturbance [None]
  - Constipation [None]
  - Nausea [None]
  - Dizziness [None]
  - Tachycardia [None]
  - Headache [None]
  - Vomiting [None]
  - Chest pain [None]
  - Mental disorder [None]
  - Agitation [None]
